FAERS Safety Report 12285345 (Version 2)
Quarter: 2016Q3

REPORT INFORMATION
  Report Type: Report from Study
  Country: JP (occurrence: JP)
  Receive Date: 20160420
  Receipt Date: 20160708
  Transmission Date: 20161109
  Serious: Yes (Death)
  Sender: FDA-Public Use
  Company Number: JP-EISAI MEDICAL RESEARCH-EC-2016-016216

PATIENT
  Age: 46 Year
  Sex: Female
  Weight: 52 kg

DRUGS (15)
  1. HALAVEN [Suspect]
     Active Substance: ERIBULIN MESYLATE
     Indication: BREAST CANCER
     Route: 041
     Dates: start: 20150826, end: 20151028
  2. BROTIZOLAM OD [Concomitant]
  3. NAUZELIN [Concomitant]
     Active Substance: DOMPERIDONE
  4. NIZATIDINE. [Concomitant]
     Active Substance: NIZATIDINE
  5. DECADRON [Concomitant]
     Active Substance: DEXAMETHASONE
  6. LOXOPROFEN [Concomitant]
     Active Substance: LOXOPROFEN
  7. ETIZOLAM [Concomitant]
     Active Substance: ETIZOLAM
  8. OXINORM [Concomitant]
     Active Substance: OXYCODONE HYDROCHLORIDE
  9. CALONAL [Concomitant]
     Active Substance: ACETAMINOPHEN
  10. LAC-B [Concomitant]
     Active Substance: BIFIDOBACTERIUM SPP.
  11. CIPROFLOXACIN. [Concomitant]
     Active Substance: CIPROFLOXACIN
  12. BUSCOPAN [Concomitant]
     Active Substance: BUTYLSCOPOLAMINE BROMIDE
  13. CARBOCISTEINE [Concomitant]
     Active Substance: CARBOCYSTEINE
  14. ZOLPIDEM TARTRATE OD [Concomitant]
     Active Substance: ZOLPIDEM TARTRATE
  15. CRAVIT [Concomitant]
     Active Substance: LEVOFLOXACIN

REACTIONS (1)
  - Malignant neoplasm progression [Fatal]

NARRATIVE: CASE EVENT DATE: 20160223
